FAERS Safety Report 5308407-5 (Version None)
Quarter: 2007Q2

REPORT INFORMATION
  Report Type: 
  Country: None (occurrence: None)
  Receive Date: 20070420
  Receipt Date: 20070420
  Transmission Date: 20071010
  Serious: Yes (Other)
  Sender: FDA-Public Use
  Company Number: None

PATIENT
  Age: 61 Year
  Sex: Female
  Weight: 56.6 kg

DRUGS (2)
  1. GEMCITABINE HCL [Suspect]
     Indication: T-CELL LYMPHOMA REFRACTORY
     Dosage: 1280 MG DAYS 1 + 8 IV DRIP
     Route: 041
     Dates: start: 20070316, end: 20070405
  2. BORTEZOMIB [Suspect]
     Indication: T-CELL LYMPHOMA REFRACTORY
     Dosage: 2.6 MG DAYS 1 + 8 IV BOLUS
     Route: 040
     Dates: start: 20070316, end: 20070405

REACTIONS (9)
  - ALANINE AMINOTRANSFERASE INCREASED [None]
  - ASPARTATE AMINOTRANSFERASE INCREASED [None]
  - BLOOD ALKALINE PHOSPHATASE [None]
  - BLOOD ALKALINE PHOSPHATASE INCREASED [None]
  - BLOOD LACTATE DEHYDROGENASE INCREASED [None]
  - DISEASE PROGRESSION [None]
  - HAEMATOCRIT DECREASED [None]
  - HAEMOGLOBIN DECREASED [None]
  - PLATELET COUNT DECREASED [None]
